FAERS Safety Report 10628990 (Version 2)
Quarter: 2014Q4

REPORT INFORMATION
  Report Type: Spontaneous
  Country: US (occurrence: US)
  Receive Date: 20141205
  Receipt Date: 20141205
  Transmission Date: 20150529
  Serious: Yes (Other)
  Sender: FDA-Public Use
  Company Number: US-BRISTOL-MYERS SQUIBB COMPANY-21540133

PATIENT
  Age: 79 Year
  Sex: Female

DRUGS (2)
  1. DABIGATRAN ETEXILATE [Suspect]
     Active Substance: DABIGATRAN ETEXILATE
  2. WARFARIN SODIUM. [Suspect]
     Active Substance: WARFARIN SODIUM
     Dosage: LAST DOSE 23-NOV-2013

REACTIONS (1)
  - Gastrointestinal haemorrhage [Unknown]
